FAERS Safety Report 9796658 (Version 2)
Quarter: 2014Q1

REPORT INFORMATION
  Report Type: Report from Study
  Country: US (occurrence: US)
  Receive Date: 20140103
  Receipt Date: 20140108
  Transmission Date: 20141002
  Serious: Yes (Hospitalization)
  Sender: FDA-Public Use
  Company Number: US-GLAXOSMITHKLINE-A1055238A

PATIENT
  Age: 47 Year
  Sex: Female
  Weight: 50.2 kg

DRUGS (10)
  1. PAZOPANIB [Suspect]
     Indication: SQUAMOUS CELL CARCINOMA OF HEAD AND NECK
     Dosage: 200MG PER DAY
     Route: 048
     Dates: start: 20130701
  2. CETUXIMAB [Suspect]
     Indication: SQUAMOUS CELL CARCINOMA OF HEAD AND NECK
     Dosage: 250MGM2 WEEKLY
     Route: 042
     Dates: start: 20130701
  3. CLINDAMYCIN PHOSPHATE [Concomitant]
  4. HYDROCODONE + ACETAMINOPHEN [Concomitant]
  5. HYDROCORTISONE [Concomitant]
  6. LIDOCAINE + PRILOCAINE [Concomitant]
  7. LORAZEPAM [Concomitant]
  8. METRONIDAZOLE [Concomitant]
  9. PHOS-NAK [Concomitant]
  10. PROCHLORPERAZINE MALEATE [Concomitant]

REACTIONS (1)
  - Anxiety [Unknown]
